FAERS Safety Report 24336873 (Version 1)
Quarter: 2024Q3

REPORT INFORMATION
  Report Type: Spontaneous
  Country: US (occurrence: US)
  Receive Date: 20240919
  Receipt Date: 20240919
  Transmission Date: 20241017
  Serious: Yes (Other)
  Sender: AMNEAL
  Company Number: US-AMNEAL PHARMACEUTICALS-2024-AMRX-03343

PATIENT
  Sex: Male

DRUGS (1)
  1. VIGABATRIN [Suspect]
     Active Substance: VIGABATRIN
     Indication: Seizure
     Dosage: 500 MG, 1 PACKET IN 10 ML OF WATER AND GIVE/ TAKE 4 ML (200 MG) BY G-TUBE DAILY.
     Route: 048
     Dates: start: 2017

REACTIONS (1)
  - Chronic kidney disease [Unknown]
